FAERS Safety Report 7050721-X (Version None)
Quarter: 2010Q4

REPORT INFORMATION
  Report Type: 
  Country: None (occurrence: None)
  Receive Date: 20101019
  Receipt Date: 20101006
  Transmission Date: 20110411
  Serious: No
  Sender: FDA-Public Use
  Company Number: US-BIOGENIDEC-2010BI011205

PATIENT
  Age: 53 Year
  Sex: Female

DRUGS (2)
  1. TYSABRI [Suspect]
     Indication: MULTIPLE SCLEROSIS
     Route: 042
     Dates: start: 20070813, end: 20080517
  2. TYSABRI [Suspect]
     Route: 042
     Dates: start: 20080722, end: 20100510

REACTIONS (2)
  - BLISTER [None]
  - RASH [None]
